FAERS Safety Report 7029313-4 (Version None)
Quarter: 2010Q4

REPORT INFORMATION
  Report Type: 
  Country: None (occurrence: None)
  Receive Date: 20101005
  Receipt Date: 20100928
  Transmission Date: 20110411
  Serious: Yes (Hospitalization)
  Sender: FDA-Public Use
  Company Number: JP-WYE-H17874510

PATIENT
  Age: 79 Year
  Sex: Male

DRUGS (1)
  1. ZOSYN [Suspect]
     Indication: PYELONEPHRITIS ACUTE
     Route: 041
     Dates: start: 20100923, end: 20100923

REACTIONS (2)
  - FLUSHING [None]
  - LARYNGEAL OEDEMA [None]
